FAERS Safety Report 25755038 (Version 2)
Quarter: 2025Q3

REPORT INFORMATION
  Report Type: Spontaneous
  Country: EU (occurrence: EU)
  Receive Date: 20250903
  Receipt Date: 20250917
  Transmission Date: 20251021
  Serious: Yes (Other)
  Sender: TEVA
  Company Number: None

PATIENT
  Age: 76 Year
  Sex: Male
  Weight: 88 kg

DRUGS (8)
  1. RISPERIDONE [Suspect]
     Active Substance: RISPERIDONE
     Indication: Neuropsychological symptoms
     Dosage: 1 TABLET 2 TIMES A DAY 1+0+1, RISPERIDONE ACTAVIS
     Route: 065
     Dates: start: 20240914, end: 20250206
  2. Terbisil [Concomitant]
     Indication: Product used for unknown indication
     Route: 065
  3. DIAZEPAM [Concomitant]
     Active Substance: DIAZEPAM
     Indication: Product used for unknown indication
     Route: 065
  4. Paracetamol EQL Pharma [Concomitant]
     Indication: Product used for unknown indication
     Route: 065
  5. Folvidon [Concomitant]
     Indication: Product used for unknown indication
     Route: 065
  6. AMLODIPINE BESYLATE [Concomitant]
     Active Substance: AMLODIPINE BESYLATE
     Indication: Product used for unknown indication
     Route: 065
  7. Betolvex [Concomitant]
     Indication: Product used for unknown indication
     Route: 065
  8. Oxycodone Depot 1A Farma [Concomitant]
     Indication: Product used for unknown indication
     Route: 065

REACTIONS (4)
  - Hepatic cirrhosis [Unknown]
  - Dyspnoea [Recovered/Resolved with Sequelae]
  - Depressed level of consciousness [Recovered/Resolved with Sequelae]
  - Hepatic failure [Recovered/Resolved with Sequelae]

NARRATIVE: CASE EVENT DATE: 20250101
